FAERS Safety Report 9366005 (Version 2)
Quarter: 2013Q3

REPORT INFORMATION
  Report Type: Spontaneous
  Country: US (occurrence: US)
  Receive Date: 20130625
  Receipt Date: 20130708
  Transmission Date: 20140515
  Serious: No
  Sender: FDA-Public Use
  Company Number: US-009507513-1305USA014541

PATIENT
  Age: 63 Year
  Sex: Female

DRUGS (4)
  1. CLARITIN-D-12 [Suspect]
     Indication: COUGH
     Dosage: 5 MG, QD
     Route: 048
     Dates: start: 20130507, end: 20130509
  2. CLARITIN-D-12 [Suspect]
     Indication: MEDICAL OBSERVATION
  3. CLARITIN-D-12 [Suspect]
     Indication: RHINORRHOEA
  4. CLARITIN-D-12 [Suspect]
     Indication: SNEEZING

REACTIONS (8)
  - Dehydration [Not Recovered/Not Resolved]
  - Rhinorrhoea [Unknown]
  - Dry mouth [Not Recovered/Not Resolved]
  - Skin fissures [Not Recovered/Not Resolved]
  - Anosmia [Not Recovered/Not Resolved]
  - Ageusia [Not Recovered/Not Resolved]
  - Conjunctivitis [Not Recovered/Not Resolved]
  - Condition aggravated [Not Recovered/Not Resolved]
